FAERS Safety Report 10563914 (Version 1)
Quarter: 2014Q4

REPORT INFORMATION
  Report Type: Spontaneous
  Country: FR (occurrence: FR)
  Receive Date: 20141104
  Receipt Date: 20141104
  Transmission Date: 20150529
  Serious: Yes (Hospitalization, Other)
  Sender: FDA-Public Use
  Company Number: FR-ASTRAZENECA-2014SE78419

PATIENT
  Age: 31661 Day
  Sex: Male
  Weight: 58 kg

DRUGS (6)
  1. XYLOCAINE [Suspect]
     Active Substance: LIDOCAINE HYDROCHLORIDE
     Dosage: ONCE/SINGLE ADMINISTRATION
     Route: 047
     Dates: start: 20140930, end: 20140930
  2. ATROPINE [Suspect]
     Active Substance: ATROPINE
     Dates: start: 20140930, end: 20140930
  3. NEOSYNEPHRINE [Suspect]
     Active Substance: PHENYLEPHRINE HYDROCHLORIDE
     Dosage: TWO DROPS AT ONE HOUR INTERVAL
     Route: 047
     Dates: start: 20140930, end: 20140930
  4. OXYBUPROCAINE FAURE [Suspect]
     Active Substance: BENOXINATE
     Dosage: ONCE/SINGLE ADMINISTRATION
     Route: 065
     Dates: start: 20140930, end: 20140930
  5. SKIACOL [Suspect]
     Active Substance: CYCLOPENTOLATE
     Dosage: TWO DROPS AT ONE HOUR INTERVAL
     Route: 047
     Dates: start: 20140930, end: 20140930
  6. HYPNOVEL [Suspect]
     Active Substance: MIDAZOLAM\MIDAZOLAM HYDROCHLORIDE
     Route: 042
     Dates: start: 20140930, end: 20140930

REACTIONS (5)
  - Malaise [Recovered/Resolved]
  - Blood pressure decreased [Recovered/Resolved]
  - Product use issue [Unknown]
  - Atrioventricular block first degree [Unknown]
  - Bradycardia [Recovering/Resolving]

NARRATIVE: CASE EVENT DATE: 20140930
